FAERS Safety Report 19763384 (Version 2)
Quarter: 2022Q1

REPORT INFORMATION
  Report Type: Spontaneous
  Country: US (occurrence: US)
  Receive Date: 20210830
  Receipt Date: 20220119
  Transmission Date: 20220424
  Serious: No
  Sender: FDA-Public Use
  Company Number: US-PFIZER INC-2021853665

PATIENT
  Age: 60 Year
  Sex: Female

DRUGS (2)
  1. XELJANZ [Suspect]
     Active Substance: TOFACITINIB CITRATE
     Dosage: 5 MG
     Dates: start: 20210618
  2. XELJANZ [Suspect]
     Active Substance: TOFACITINIB CITRATE
     Dosage: 5 MG
     Dates: start: 20210628

REACTIONS (7)
  - Oropharyngeal pain [Unknown]
  - Nasal congestion [Unknown]
  - Pyrexia [Unknown]
  - Pain in extremity [Unknown]
  - Candida infection [Unknown]
  - Muscle spasms [Unknown]
  - Pain [Unknown]
